FAERS Safety Report 13167187 (Version 4)
Quarter: 2019Q3

REPORT INFORMATION
  Report Type: Spontaneous
  Country: PL (occurrence: PL)
  Receive Date: 20170131
  Receipt Date: 20190702
  Transmission Date: 20191004
  Serious: Yes (Life-Threatening)
  Sender: FDA-Public Use
  Company Number: PL-ROCHE-1886660

PATIENT
  Age: 23 Year
  Sex: Female

DRUGS (8)
  1. ACTILYSE [Suspect]
     Active Substance: ALTEPLASE
     Dosage: OVER THE NEXT 2 HOUR AS PART OF SECOND DOSE THERAPY OF ALTEPLASE
     Route: 041
  2. ACTILYSE [Suspect]
     Active Substance: ALTEPLASE
     Dosage: OVER THE NEXT 2 HOUR AS PART OF FIRST DOSE THERAPY OF ALTEPLASE
     Route: 041
  3. MIDAZOLAM [Suspect]
     Active Substance: MIDAZOLAM HYDROCHLORIDE
     Indication: SEDATION
     Route: 065
  4. HEPARIN [Concomitant]
     Active Substance: HEPARIN SODIUM
     Indication: PRODUCT USED FOR UNKNOWN INDICATION
     Route: 065
  5. ACTILYSE [Suspect]
     Active Substance: ALTEPLASE
     Indication: PULMONARY EMBOLISM
     Dosage: AS PART OF FIRST DOSE THERAPY OF ALTEPLASE
     Route: 040
  6. ACTILYSE [Suspect]
     Active Substance: ALTEPLASE
     Dosage: AS PART OF SECOND DOSE THERAPY OF ALTEPLASE
     Route: 040
  7. WARFARIN [Concomitant]
     Active Substance: WARFARIN
     Indication: PRODUCT USED FOR UNKNOWN INDICATION
  8. FENTANYL. [Concomitant]
     Active Substance: FENTANYL
     Indication: SEDATION
     Route: 065

REACTIONS (2)
  - Shock [Recovered/Resolved]
  - Maternal exposure during pregnancy [Unknown]
